FAERS Safety Report 19010382 (Version 2)
Quarter: 2021Q1

REPORT INFORMATION
  Report Type: Spontaneous
  Country: FR (occurrence: FR)
  Receive Date: 20210316
  Receipt Date: 20210327
  Transmission Date: 20210420
  Serious: Yes (Hospitalization)
  Sender: FDA-Public Use
  Company Number: FR-TEVA-2021-FR-1889459

PATIENT
  Age: 82 Year
  Sex: Male

DRUGS (6)
  1. LEVOFLOXACINE [Suspect]
     Active Substance: LEVOFLOXACIN
     Indication: OSTEITIS
     Dosage: 1000MILLIGRAM
     Route: 048
     Dates: start: 20200716, end: 20200810
  2. CETIRIZINE (DICHLORHYDRATE DE) [Concomitant]
     Active Substance: CETIRIZINE HYDROCHLORIDE
     Dosage: 1DOSAGEFORM
     Route: 048
  3. ESOMEPRAZOLE. [Concomitant]
     Active Substance: ESOMEPRAZOLE MAGNESIUM
     Dosage: 40MILLIGRAM
     Route: 048
  4. RIFAMPICINE [Suspect]
     Active Substance: RIFAMPIN
     Indication: OSTEITIS
     Dosage: 600MILLIGRAM
     Route: 048
     Dates: start: 20200716, end: 20200810
  5. PARACETAMOL [Concomitant]
     Active Substance: ACETAMINOPHEN
     Dosage: 500MILLIGRAM
     Route: 048
  6. LIBTAYO 350 MG, SOLUTION A DILUER POUR PERFUSION [Concomitant]
     Dosage: 350MILLIGRAM
     Route: 042
     Dates: start: 20191231, end: 20191231

REACTIONS (4)
  - Eosinophilia [Recovered/Resolved]
  - Pyrexia [Recovered/Resolved]
  - Rash maculo-papular [Recovered/Resolved]
  - Hepatocellular injury [Recovered/Resolved]

NARRATIVE: CASE EVENT DATE: 20200727
